FAERS Safety Report 5138958-8 (Version None)
Quarter: 2006Q4

REPORT INFORMATION
  Report Type: 
  Country: None (occurrence: None)
  Receive Date: 20061030
  Receipt Date: 20060515
  Transmission Date: 20070319
  Serious: No
  Sender: FDA-Public Use
  Company Number: US-GLAXOSMITHKLINE-A0606700A

PATIENT
  Age: 47 Year
  Sex: Female
  Weight: 90 kg

DRUGS (9)
  1. ADVAIR HFA [Suspect]
     Indication: DRUG USE FOR UNKNOWN INDICATION
     Route: 055
     Dates: start: 20040624, end: 20060504
  2. VITAMINS [Concomitant]
     Route: 048
  3. SINGULAIR [Concomitant]
     Route: 048
  4. ASPIRIN [Concomitant]
     Route: 048
  5. CLINDAMYCIN [Concomitant]
     Route: 048
  6. DIOVAN HCT [Concomitant]
     Route: 048
  7. ULTRACET [Concomitant]
     Route: 048
  8. PROTONIX [Concomitant]
     Route: 048
  9. EFFEXOR XR [Concomitant]
     Route: 048

REACTIONS (4)
  - DYSPNOEA [None]
  - MUSCLE TIGHTNESS [None]
  - PHARYNGOLARYNGEAL PAIN [None]
  - THROAT TIGHTNESS [None]
